FAERS Safety Report 15413614 (Version 1)
Quarter: 2018Q3

REPORT INFORMATION
  Report Type: Spontaneous
  Country: JP (occurrence: JP)
  Receive Date: 20180921
  Receipt Date: 20180921
  Transmission Date: 20181010
  Serious: Yes (Other)
  Sender: FDA-Public Use
  Company Number: JP-BAYER-2018-175795

PATIENT
  Sex: Male

DRUGS (1)
  1. STIVARGA [Suspect]
     Active Substance: REGORAFENIB
     Indication: HEPATOCELLULAR CARCINOMA
     Dosage: CONTINUE TAKING DRUG FOR 3 WEEKS AND INTURRUPT 1 WEEK
     Route: 048
     Dates: start: 20170803, end: 20180516

REACTIONS (7)
  - Dyspnoea [Unknown]
  - Hepatic encephalopathy [Unknown]
  - Blood bilirubin increased [Unknown]
  - Hepatocellular carcinoma [Unknown]
  - Decreased appetite [Unknown]
  - General physical health deterioration [Unknown]
  - Diarrhoea [Unknown]

NARRATIVE: CASE EVENT DATE: 20170913
